FAERS Safety Report 7646863-8 (Version None)
Quarter: 2011Q3

REPORT INFORMATION
  Report Type: 
  Country: None (occurrence: None)
  Receive Date: 20110801
  Receipt Date: 20110725
  Transmission Date: 20111222
  Serious: Yes (Death, Other)
  Sender: FDA-Public Use
  Company Number: US-TEVA-292365USA

PATIENT
  Sex: Female

DRUGS (1)
  1. CLARAVIS [Suspect]

REACTIONS (1)
  - ROAD TRAFFIC ACCIDENT [None]
